FAERS Safety Report 10912505 (Version 1)
Quarter: 2015Q1

REPORT INFORMATION
  Report Type: Spontaneous
  Country: US (occurrence: None)
  Receive Date: 20150310
  Receipt Date: 20150310
  Transmission Date: 20150721
  Serious: No
  Sender: FDA-Public Use
  Company Number: None

PATIENT
  Age: 8 Year
  Sex: Male
  Weight: 26.31 kg

DRUGS (5)
  1. CONCERTA - GENERIC [Suspect]
     Active Substance: METHYLPHENIDATE HYDROCHLORIDE
     Indication: ATTENTION DEFICIT/HYPERACTIVITY DISORDER
     Dosage: 1 PILL, TAKEN IN THE AM. TAKEN BY MOOUTH
     Dates: start: 201411
  2. CONCERTA [Concomitant]
     Active Substance: METHYLPHENIDATE HYDROCHLORIDE
  3. MAGNESIIUM [Concomitant]
  4. CALCIUM [Concomitant]
     Active Substance: CALCIUM
  5. FISH OIL [Concomitant]
     Active Substance: FISH OIL

REACTIONS (6)
  - Product substitution issue [None]
  - Emotional distress [None]
  - Anxiety [None]
  - Product quality issue [None]
  - Panic reaction [None]
  - Product physical issue [None]

NARRATIVE: CASE EVENT DATE: 20141101
